FAERS Safety Report 9364651 (Version 1)
Quarter: 2013Q2

REPORT INFORMATION
  Report Type: Report from Study
  Country: BR (occurrence: BR)
  Receive Date: 20130624
  Receipt Date: 20130624
  Transmission Date: 20140414
  Serious: Yes (Death, Hospitalization, Other)
  Sender: FDA-Public Use
  Company Number: BR-ABBOTT-13P-020-1106019-00

PATIENT
  Sex: Female

DRUGS (1)
  1. HUMIRA [Suspect]
     Indication: RHEUMATOID ARTHRITIS
     Dosage: RECEIVED ONLY 2 DOSES
     Route: 058
     Dates: start: 201305

REACTIONS (5)
  - Meningitis [Fatal]
  - Encephalitis [Unknown]
  - Headache [Unknown]
  - Vomiting [Unknown]
  - General physical condition abnormal [Unknown]
